FAERS Safety Report 18026665 (Version 1)
Quarter: 2020Q3

REPORT INFORMATION
  Report Type: Spontaneous
  Country: US (occurrence: US)
  Receive Date: 20200715
  Receipt Date: 20200715
  Transmission Date: 20201103
  Serious: No
  Sender: FDA-Public Use
  Company Number: US-LEXICON PHARMACEUTICALS, INC-20-1606-00537

PATIENT
  Age: 64 Year
  Sex: Male

DRUGS (14)
  1. XERMELO [Suspect]
     Active Substance: TELOTRISTAT ETHYL
     Indication: CARCINOID TUMOUR
     Dates: start: 20200107
  2. PROCHLORPERAZINE. [Concomitant]
     Active Substance: PROCHLORPERAZINE
  3. CARVEDILOL. [Concomitant]
     Active Substance: CARVEDILOL
  4. BUSPAR [Concomitant]
     Active Substance: BUSPIRONE HYDROCHLORIDE
  5. FENTANYL. [Concomitant]
     Active Substance: FENTANYL
  6. OCTREOTIDE ACETATE. [Concomitant]
     Active Substance: OCTREOTIDE ACETATE
  7. DULOXETINE HCL [Concomitant]
     Active Substance: DULOXETINE HYDROCHLORIDE
  8. CHLORTHALIDONE. [Concomitant]
     Active Substance: CHLORTHALIDONE
  9. HYDRALAZINE HCL [Concomitant]
     Active Substance: HYDRALAZINE HYDROCHLORIDE
  10. HYDROCODONE BITARTRATE ER [Concomitant]
  11. XANAX [Concomitant]
     Active Substance: ALPRAZOLAM
  12. TAMSULOSIN HCL [Concomitant]
     Active Substance: TAMSULOSIN HYDROCHLORIDE
  13. FINASTERIDE. [Concomitant]
     Active Substance: FINASTERIDE
  14. MORPHINE SULFATE ER [Concomitant]
     Active Substance: MORPHINE SULFATE

REACTIONS (1)
  - Constipation [Unknown]
